FAERS Safety Report 23954698 (Version 2)
Quarter: 2024Q3

REPORT INFORMATION
  Report Type: Report from Study
  Country: ES (occurrence: ES)
  Receive Date: 20240610
  Receipt Date: 20240711
  Transmission Date: 20241016
  Serious: Yes (Other)
  Sender: UCB
  Company Number: ES-UCBSA-2024028550

PATIENT
  Sex: Male

DRUGS (3)
  1. FINTEPLA [Suspect]
     Active Substance: FENFLURAMINE
     Indication: Severe myoclonic epilepsy of infancy
     Dosage: 32 MILLIGRAM/KILOGRAM
     Dates: start: 202312
  2. FINTEPLA [Suspect]
     Active Substance: FENFLURAMINE
     Dosage: 38 MILLIGRAM/KILOGRAM
  3. FINTEPLA [Suspect]
     Active Substance: FENFLURAMINE
     Dosage: 13 MILLIGRAM, EVERY TWELVE HOURS

REACTIONS (4)
  - Generalised tonic-clonic seizure [Recovered/Resolved]
  - Drug ineffective [Unknown]
  - Overdose [Unknown]
  - Off label use [Unknown]

NARRATIVE: CASE EVENT DATE: 20240201
